FAERS Safety Report 4952954-2 (Version None)
Quarter: 2006Q1

REPORT INFORMATION
  Report Type: 
  Country: None (occurrence: None)
  Receive Date: 20060324
  Receipt Date: 20060317
  Transmission Date: 20060701
  Serious: Yes (Other)
  Sender: FDA-Public Use
  Company Number: US-BRISTOL-MYERS SQUIBB COMPANY-13319454

PATIENT
  Sex: Male

DRUGS (3)
  1. ERBITUX [Suspect]
     Indication: COLORECTAL CANCER
     Dosage: 400 MG/M2; STOPPED. FIRST DOSE.
     Route: 042
     Dates: start: 20060316, end: 20060316
  2. CAMPTOSAR [Concomitant]
  3. BENADRYL [Concomitant]
     Indication: PREMEDICATION
     Route: 042
     Dates: start: 20060316, end: 20060316

REACTIONS (2)
  - CONVULSION [None]
  - ERYTHEMA [None]
